FAERS Safety Report 24057854 (Version 1)
Quarter: 2024Q3

REPORT INFORMATION
  Report Type: Spontaneous
  Country: US (occurrence: US)
  Receive Date: 20240707
  Receipt Date: 20240707
  Transmission Date: 20241017
  Serious: Yes (Hospitalization, Other)
  Sender: DR REDDYS
  Company Number: US-DRL-USA-LIT/USA/24/0009486

PATIENT
  Age: 18 Year
  Sex: Female

DRUGS (10)
  1. ESLICARBAZEPINE ACETATE [Suspect]
     Active Substance: ESLICARBAZEPINE ACETATE
     Indication: Seizure
     Dosage: 600MG IN THE MORNING
  2. ESLICARBAZEPINE ACETATE [Suspect]
     Active Substance: ESLICARBAZEPINE ACETATE
     Dosage: AND 800MG AT NIGHT
  3. ESLICARBAZEPINE ACETATE [Suspect]
     Active Substance: ESLICARBAZEPINE ACETATE
     Dosage: 800MG TWICE DAILY
  4. ZONISAMIDE [Suspect]
     Active Substance: ZONISAMIDE
     Indication: Seizure
  5. ZONISAMIDE [Suspect]
     Active Substance: ZONISAMIDE
  6. ZONISAMIDE [Suspect]
     Active Substance: ZONISAMIDE
  7. ZONISAMIDE [Suspect]
     Active Substance: ZONISAMIDE
  8. ZONISAMIDE [Suspect]
     Active Substance: ZONISAMIDE
  9. ARIPIPRAZOLE [Suspect]
     Active Substance: ARIPIPRAZOLE
     Indication: Seizure
  10. METHYLPHENIDATE [Concomitant]
     Active Substance: METHYLPHENIDATE
     Indication: Seizure
     Dosage: EXTENDED-RELEASE

REACTIONS (7)
  - Drug interaction [Unknown]
  - Drug level decreased [Unknown]
  - Ataxia [Unknown]
  - Gait disturbance [Unknown]
  - Cognitive disorder [Unknown]
  - Haemoglobin decreased [Unknown]
  - Cytopenia [Recovered/Resolved]
